FAERS Safety Report 8623390 (Version 2)
Quarter: 2014Q1

REPORT INFORMATION
  Report Type: Spontaneous
  Country: US (occurrence: None)
  Receive Date: 20120323
  Receipt Date: 20130305
  Transmission Date: 20141002
  Serious: Yes (Hospitalization)
  Sender: FDA-Public Use
  Company Number: 163-21880-11071633

PATIENT
  Age: 54 Year
  Sex: Female

DRUGS (7)
  1. REVLIMID [Suspect]
     Indication: PLASMA CELL MYELOMA
     Dosage: 10 MG, X 28 DAYS, PO ; 10 MG, Q 21 DAYS, 7 DAYS OFF, PO
     Route: 048
     Dates: start: 201010, end: 201105
  2. AMILORIDE HYDROCHLORIDE [Concomitant]
  3. ATENOLOL (ATENOLOL) [Concomitant]
  4. DIOVAN [Concomitant]
  5. DEXAMETHASONE (DEXAMETHASONE) [Concomitant]
  6. VELCADE [Concomitant]
  7. LEVAQUIN [Concomitant]

REACTIONS (3)
  - Urosepsis [None]
  - Renal function test abnormal [None]
  - Clostridial infection [None]
